FAERS Safety Report 7006094-1 (Version None)
Quarter: 2010Q3

REPORT INFORMATION
  Report Type: 
  Country: None (occurrence: None)
  Receive Date: 20100921
  Receipt Date: 20100909
  Transmission Date: 20110219
  Serious: Yes (Death)
  Sender: FDA-Public Use
  Company Number: JP-PFIZER INC-2010114301

PATIENT
  Age: 17 Year
  Sex: Female
  Weight: 42 kg

DRUGS (12)
  1. SILDENAFIL CITRATE [Suspect]
     Indication: PULMONARY ARTERIAL HYPERTENSION
     Dosage: 20 MG, 3X/DAY
     Route: 048
     Dates: start: 20080507
  2. FLOLAN [Concomitant]
     Indication: PULMONARY HYPERTENSION
     Dosage: UNK
     Route: 042
     Dates: end: 20100813
  3. TRACLEER [Concomitant]
     Indication: PULMONARY HYPERTENSION
     Route: 048
  4. LASIX [Concomitant]
     Dosage: UNK
     Route: 048
     Dates: end: 20100813
  5. ALDACTAZIDE-A [Concomitant]
     Dosage: UNK
     Route: 048
     Dates: end: 20100813
  6. ASPIRIN [Concomitant]
     Route: 048
  7. WARFARIN [Concomitant]
     Dosage: UNK
     Route: 048
     Dates: end: 20100813
  8. FAMOTIDINE [Concomitant]
     Indication: GASTRIC MUCOSAL LESION
     Dosage: UNK
     Route: 048
     Dates: end: 20100813
  9. ALLEGRA [Concomitant]
     Indication: HYPERSENSITIVITY
     Dosage: UNK
     Route: 048
     Dates: end: 20100813
  10. FERROMIA [Concomitant]
     Indication: IRON DEFICIENCY ANAEMIA
     Route: 048
  11. DIHYDROERGOTAMINE MESYLATE [Concomitant]
     Indication: HEADACHE
     Dosage: UNK
     Route: 048
     Dates: end: 20100813
  12. ADALAT [Concomitant]
     Dosage: UNK
     Route: 048
     Dates: start: 20100428, end: 20100813

REACTIONS (1)
  - DEATH [None]
